FAERS Safety Report 9246687 (Version 1)
Quarter: 2013Q2

REPORT INFORMATION
  Report Type: Spontaneous
  Country: US (occurrence: US)
  Receive Date: 20130422
  Receipt Date: 20130422
  Transmission Date: 20140414
  Serious: Yes (Other)
  Sender: FDA-Public Use
  Company Number: US-ABBOTT-13P-163-1077438-00

PATIENT
  Sex: Female

DRUGS (1)
  1. DEPAKOTE [Suspect]
     Indication: DEPRESSION

REACTIONS (11)
  - Deformity [Unknown]
  - Deformity [Unknown]
  - Stevens-Johnson syndrome [Unknown]
  - Speech disorder [Unknown]
  - Pharyngeal disorder [Unknown]
  - Speech disorder [Unknown]
  - Dysphagia [Unknown]
  - Feeling abnormal [Unknown]
  - Pain [Unknown]
  - Life expectancy shortened [Unknown]
  - Activities of daily living impaired [Unknown]
